FAERS Safety Report 21580881 (Version 1)
Quarter: 2022Q4

REPORT INFORMATION
  Report Type: Report from Study
  Country: US (occurrence: US)
  Receive Date: 20221111
  Receipt Date: 20221111
  Transmission Date: 20230113
  Serious: No
  Sender: FDA-Public Use
  Company Number: US-ABBVIE-4160876

PATIENT
  Sex: Female

DRUGS (1)
  1. RINVOQ [Suspect]
     Active Substance: UPADACITINIB
     Indication: Proctitis ulcerative
     Dosage: 45 MG ONE TAB FOR 56 DAYS (INDUCTION DOSE)?RINVOQ EXTENDED RELEASE 24 HOUR 45 MG
     Route: 048
     Dates: start: 20220824

REACTIONS (2)
  - Proctitis ulcerative [Unknown]
  - Quality of life decreased [Unknown]

NARRATIVE: CASE EVENT DATE: 20220101
